FAERS Safety Report 12205201 (Version 9)
Quarter: 2017Q3

REPORT INFORMATION
  Report Type: Report from Study
  Country: US (occurrence: US)
  Receive Date: 20160323
  Receipt Date: 20170929
  Transmission Date: 20171127
  Serious: Yes (Hospitalization, Other)
  Sender: FDA-Public Use
  Company Number: US-JNJFOC-20160227872

PATIENT
  Age: 67 Year
  Sex: Male

DRUGS (13)
  1. IMBRUVICA [Suspect]
     Active Substance: IBRUTINIB
     Indication: CHRONIC LYMPHOCYTIC LEUKAEMIA
     Route: 048
     Dates: start: 2016, end: 201605
  2. PREDNISONE. [Suspect]
     Active Substance: PREDNISONE
     Indication: PRODUCT USED FOR UNKNOWN INDICATION
     Route: 065
  3. ASPIRIN. [Concomitant]
     Active Substance: ASPIRIN
  4. IMBRUVICA [Suspect]
     Active Substance: IBRUTINIB
     Indication: CHRONIC LYMPHOCYTIC LEUKAEMIA
     Route: 048
     Dates: start: 20160109, end: 2016
  5. METOPROLOL. [Concomitant]
     Active Substance: METOPROLOL
  6. SOTALOL. [Concomitant]
     Active Substance: SOTALOL
  7. PEPCID [Concomitant]
     Active Substance: FAMOTIDINE
     Indication: GASTROOESOPHAGEAL REFLUX DISEASE
     Route: 048
  8. DILTIAZEM HYDROCHLORIDE. [Suspect]
     Active Substance: DILTIAZEM HYDROCHLORIDE
     Indication: TRANSIENT ISCHAEMIC ATTACK
     Route: 065
  9. IMBRUVICA [Suspect]
     Active Substance: IBRUTINIB
     Indication: CHRONIC LYMPHOCYTIC LEUKAEMIA
     Route: 048
     Dates: start: 2016, end: 2016
  10. ELIQUIS [Suspect]
     Active Substance: APIXABAN
     Indication: ATRIAL FIBRILLATION
  11. LEXAPRO [Concomitant]
     Active Substance: ESCITALOPRAM OXALATE
     Indication: DEPRESSION
  12. IMBRUVICA [Suspect]
     Active Substance: IBRUTINIB
     Indication: CHRONIC LYMPHOCYTIC LEUKAEMIA
     Route: 048
     Dates: start: 201605
  13. FLECAINIDE [Suspect]
     Active Substance: FLECAINIDE
     Indication: PRODUCT USED FOR UNKNOWN INDICATION

REACTIONS (20)
  - Blood count abnormal [Unknown]
  - Pruritus [Recovered/Resolved]
  - Transient ischaemic attack [Recovering/Resolving]
  - Prothrombin time prolonged [Unknown]
  - Immunosuppression [Unknown]
  - Dyspepsia [Not Recovered/Not Resolved]
  - Haemorrhage [Unknown]
  - Atrial fibrillation [Unknown]
  - Circulatory collapse [Recovered/Resolved]
  - Petechiae [Not Recovered/Not Resolved]
  - Haemoglobin decreased [Recovering/Resolving]
  - Contusion [Not Recovered/Not Resolved]
  - Syncope [Recovered/Resolved]
  - Weight decreased [Unknown]
  - Swelling [Recovering/Resolving]
  - Bundle branch block right [Unknown]
  - International normalised ratio increased [Unknown]
  - Atrial flutter [Unknown]
  - Platelet count decreased [Unknown]
  - White blood cell count abnormal [Unknown]

NARRATIVE: CASE EVENT DATE: 2016
